FAERS Safety Report 10368113 (Version 1)
Quarter: 2014Q3

REPORT INFORMATION
  Report Type: Spontaneous
  Country: US (occurrence: US)
  Receive Date: 20140807
  Receipt Date: 20140807
  Transmission Date: 20150326
  Serious: Yes (Life-Threatening, Other)
  Sender: FDA-Public Use
  Company Number: US-PFIZER INC-2014216608

PATIENT
  Age: 8 Decade
  Sex: Female

DRUGS (3)
  1. METHIMAZOLE. [Suspect]
     Active Substance: METHIMAZOLE
     Indication: HYPERTHYROIDISM
     Dosage: 30 MG, DAILY
  2. METHIMAZOLE. [Suspect]
     Active Substance: METHIMAZOLE
     Indication: HYPERTHYROIDISM
     Dosage: 60 MG, DAILY
  3. DOFETILIDE [Concomitant]
     Active Substance: DOFETILIDE
     Indication: SINUS RHYTHM
     Dosage: UNK

REACTIONS (2)
  - Hyperthyroidism [Unknown]
  - Febrile neutropenia [Unknown]
